FAERS Safety Report 12409192 (Version 1)
Quarter: 2016Q2

REPORT INFORMATION
  Report Type: Spontaneous
  Country: US (occurrence: US)
  Receive Date: 20160526
  Receipt Date: 20160526
  Transmission Date: 20160815
  Serious: No
  Sender: FDA-Public Use
  Company Number: US-ACTELION-A-US2016-134718

PATIENT
  Age: 46 Year
  Sex: Female

DRUGS (6)
  1. DIGOXIN. [Concomitant]
     Active Substance: DIGOXIN
  2. POTASSIUM ACETATE. [Concomitant]
     Active Substance: POTASSIUM ACETATE
  3. REMODULIN [Concomitant]
     Active Substance: TREPROSTINIL
  4. NORVASC [Concomitant]
     Active Substance: AMLODIPINE BESYLATE
  5. OPSUMIT [Suspect]
     Active Substance: MACITENTAN
     Indication: PULMONARY ARTERIAL HYPERTENSION
     Dosage: 10 MG, QD
     Route: 048
     Dates: end: 20160425
  6. LASIX [Concomitant]
     Active Substance: FUROSEMIDE

REACTIONS (2)
  - Oropharyngeal pain [Unknown]
  - Bronchitis [Unknown]
